FAERS Safety Report 14072961 (Version 1)
Quarter: 2017Q4

REPORT INFORMATION
  Report Type: Spontaneous
  Country: US (occurrence: US)
  Receive Date: 20171010
  Receipt Date: 20171010
  Transmission Date: 20180321
  Serious: No
  Sender: FDA-Public Use
  Company Number: US-JNJFOC-20170802221

PATIENT
  Age: 75 Year
  Sex: Female

DRUGS (12)
  1. FLONASE [Concomitant]
     Active Substance: FLUTICASONE PROPIONATE
  2. GABAPENTIN. [Concomitant]
     Active Substance: GABAPENTIN
  3. ACYCLOVIR. [Concomitant]
     Active Substance: ACYCLOVIR
  4. PROGESTERONE. [Concomitant]
     Active Substance: PROGESTERONE
  5. IMBRUVICA [Suspect]
     Active Substance: IBRUTINIB
     Indication: CHRONIC LYMPHOCYTIC LEUKAEMIA
     Route: 048
     Dates: start: 20170718
  6. ESTRADIOL. [Concomitant]
     Active Substance: ESTRADIOL
  7. ALLEGRA [Concomitant]
     Active Substance: FEXOFENADINE HYDROCHLORIDE
  8. SPIRIVA [Concomitant]
     Active Substance: TIOTROPIUM BROMIDE MONOHYDRATE
  9. HCTZ [Concomitant]
     Active Substance: HYDROCHLOROTHIAZIDE
  10. SYMBICORT [Concomitant]
     Active Substance: BUDESONIDE\FORMOTEROL FUMARATE DIHYDRATE
  11. SINGULAIR [Concomitant]
     Active Substance: MONTELUKAST SODIUM
  12. ALDACTONE [Concomitant]
     Active Substance: SPIRONOLACTONE

REACTIONS (6)
  - White blood cell count increased [Unknown]
  - Off label use [Unknown]
  - Neutrophil count abnormal [Unknown]
  - Lymphocyte count abnormal [Unknown]
  - Incorrect dose administered [Unknown]
  - Nausea [Unknown]

NARRATIVE: CASE EVENT DATE: 20170716
